FAERS Safety Report 12421902 (Version 3)
Quarter: 2016Q2

REPORT INFORMATION
  Report Type: Spontaneous
  Country: US (occurrence: US)
  Receive Date: 20160531
  Receipt Date: 20160629
  Transmission Date: 20160815
  Serious: Yes (Hospitalization, Other)
  Sender: FDA-Public Use
  Company Number: US-PFIZER INC-2016277939

PATIENT
  Age: 85 Year
  Sex: Female
  Weight: 71.66 kg

DRUGS (1)
  1. IBRANCE [Suspect]
     Active Substance: PALBOCICLIB
     Dosage: 125 MG, CYCLIC (DAILY FOR 21 DAYS THEN 7 DAYS OFF)
     Dates: start: 20160504, end: 20160526

REACTIONS (4)
  - Blood magnesium decreased [Unknown]
  - Thoracic vertebral fracture [Unknown]
  - White blood cell count decreased [Unknown]
  - Dehydration [Unknown]

NARRATIVE: CASE EVENT DATE: 2016
